FAERS Safety Report 18684677 (Version 4)
Quarter: 2021Q4

REPORT INFORMATION
  Report Type: Report from Study
  Country: US (occurrence: US)
  Receive Date: 20201230
  Receipt Date: 20211005
  Transmission Date: 20220303
  Serious: Yes (Other)
  Sender: FDA-Public Use
  Company Number: US-OTSUKA-2020_032778

PATIENT
  Age: 80 Year
  Sex: Male
  Weight: 87.09 kg

DRUGS (1)
  1. CEDAZURIDINE\DECITABINE [Suspect]
     Active Substance: CEDAZURIDINE\DECITABINE
     Indication: Myelodysplastic syndrome
     Dosage: 35/100 MG (35 MG DECITABINE AND 100 MG CEDAZURIDINE, ON DAYS 1-5 EVERY 28 DAYS
     Route: 065
     Dates: start: 20201214, end: 20210223

REACTIONS (8)
  - Platelet transfusion [Unknown]
  - Drug intolerance [Unknown]
  - White blood cell count increased [Unknown]
  - Pain in extremity [Unknown]
  - Neck pain [Unknown]
  - Arthralgia [Unknown]
  - Dyspnoea [Unknown]
  - Fatigue [Unknown]

NARRATIVE: CASE EVENT DATE: 20201201
